FAERS Safety Report 15661782 (Version 2)
Quarter: 2019Q2

REPORT INFORMATION
  Report Type: Report from Study
  Country: FR (occurrence: FR)
  Receive Date: 20181127
  Receipt Date: 20190422
  Transmission Date: 20190711
  Serious: Yes (Hospitalization, Other)
  Sender: FDA-Public Use
  Company Number: FR-SAKK-2018SA151560AA

PATIENT
  Age: 50 Year
  Sex: Male
  Weight: 71 kg

DRUGS (10)
  1. VENTOLINE [SALBUTAMOL] [Concomitant]
     Active Substance: ALBUTEROL SULFATE
     Indication: ASTHMA
     Dosage: 100 UNK
     Route: 055
     Dates: start: 2006
  2. SINGULAIR [Concomitant]
     Active Substance: MONTELUKAST SODIUM
     Route: 048
     Dates: start: 2017
  3. PANTOPRAZOLE [Concomitant]
     Active Substance: PANTOPRAZOLE
  4. CORTANCYL [Suspect]
     Active Substance: PREDNISONE
     Indication: ASTHMA
     Dosage: 10 MG, QD
     Route: 048
     Dates: start: 2014
  5. SERETIDE [Concomitant]
     Active Substance: FLUTICASONE PROPIONATE\SALMETEROL XINAFOATE
     Indication: ASTHMA
     Dosage: 500 UNK, BID
     Route: 055
     Dates: start: 2006
  6. OXEOL [Concomitant]
     Active Substance: BAMBUTEROL HYDROCHLORIDE
  7. DUPILUMAB [Suspect]
     Active Substance: DUPILUMAB
     Indication: ASTHMA
     Dosage: 600 MG, 1X
     Route: 058
     Dates: start: 20180126, end: 20180126
  8. CACIT [CALCIUM CARBONATE] [Concomitant]
     Active Substance: CALCIUM CARBONATE
  9. DUPILUMAB [Suspect]
     Active Substance: DUPILUMAB
     Dosage: 300 MG, QOW
     Route: 058
     Dates: start: 20180209, end: 20180406
  10. SPIRIVA [Concomitant]
     Active Substance: TIOTROPIUM BROMIDE MONOHYDRATE
     Indication: ASTHMA
     Dosage: 5 UNK, QD
     Route: 055
     Dates: start: 2017

REACTIONS (10)
  - Glycosylated haemoglobin increased [Recovered/Resolved]
  - Vision blurred [Not Recovered/Not Resolved]
  - Maculopathy [Unknown]
  - Visual impairment [Unknown]
  - Blood glucose increased [Recovered/Resolved]
  - Diabetes insipidus [Recovered/Resolved]
  - Drug ineffective [Unknown]
  - Ketonuria [Recovered/Resolved]
  - Weight decreased [Unknown]
  - Polydipsia [Not Recovered/Not Resolved]

NARRATIVE: CASE EVENT DATE: 20180413
